FAERS Safety Report 12714753 (Version 2)
Quarter: 2016Q3

REPORT INFORMATION
  Report Type: Other
  Country: US (occurrence: US)
  Receive Date: 20160905
  Receipt Date: 20160921
  Transmission Date: 20161109
  Serious: Yes (Hospitalization)
  Sender: FDA-Public Use
  Company Number: US-UNITED THERAPEUTICS-UNT-2016-010761

PATIENT
  Sex: Female
  Weight: 134.69 kg

DRUGS (4)
  1. REVATIO [Concomitant]
     Active Substance: SILDENAFIL CITRATE
     Indication: PRODUCT USED FOR UNKNOWN INDICATION
  2. TYVASO [Suspect]
     Active Substance: TREPROSTINIL
     Dosage: UNK
  3. TYVASO [Suspect]
     Active Substance: TREPROSTINIL
     Indication: PULMONARY HYPERTENSION
     Dosage: 18-72 ?G, QID
     Dates: start: 20160616, end: 2016
  4. TYVASO [Suspect]
     Active Substance: TREPROSTINIL
     Dosage: UNK

REACTIONS (10)
  - Product use issue [Unknown]
  - Hepatic cirrhosis [Not Recovered/Not Resolved]
  - Drug dose omission [Unknown]
  - Fatigue [Not Recovered/Not Resolved]
  - Asthenia [Unknown]
  - Pain [Unknown]
  - Incorrect dose administered [Unknown]
  - Chest pain [Unknown]
  - Headache [Recovered/Resolved]
  - Wheezing [Not Recovered/Not Resolved]

NARRATIVE: CASE EVENT DATE: 2016
